FAERS Safety Report 25146662 (Version 6)
Quarter: 2025Q2

REPORT INFORMATION
  Report Type: Spontaneous
  Country: US (occurrence: US)
  Receive Date: 20250401
  Receipt Date: 20250505
  Transmission Date: 20250716
  Serious: Yes (Hospitalization, Other)
  Sender: IPSEN BIOPHARMACEUTICALS, INC.
  Company Number: US-IPSEN Group, Research and Development-2025-06858

PATIENT
  Age: 64 Year
  Sex: Male
  Weight: 61.5 kg

DRUGS (3)
  1. TAZEMETOSTAT [Suspect]
     Active Substance: TAZEMETOSTAT
     Indication: Sarcoma uterus
     Route: 048
     Dates: start: 20241030
  2. TAZEMETOSTAT [Suspect]
     Active Substance: TAZEMETOSTAT
     Indication: Peripheral T-cell lymphoma unspecified
     Route: 048
     Dates: start: 20241230
  3. TAZEMETOSTAT [Suspect]
     Active Substance: TAZEMETOSTAT
     Indication: Off label use
     Route: 048
     Dates: start: 20250225, end: 20250321

REACTIONS (12)
  - Weight decreased [Unknown]
  - Vomiting [Unknown]
  - Diarrhoea [Unknown]
  - Decreased appetite [Unknown]
  - Sepsis [Unknown]
  - Gastroenteritis [Unknown]
  - Fatigue [Unknown]
  - Hypotension [Unknown]
  - Dyspnoea [Unknown]
  - Acute kidney injury [Unknown]
  - Disease progression [Unknown]
  - Off label use [Unknown]

NARRATIVE: CASE EVENT DATE: 20241030
